FAERS Safety Report 5160291-9 (Version None)
Quarter: 2006Q4

REPORT INFORMATION
  Report Type: 
  Country: None (occurrence: None)
  Receive Date: 20061129
  Receipt Date: 20061120
  Transmission Date: 20070319
  Serious: Yes (Hospitalization)
  Sender: FDA-Public Use
  Company Number: FR-GLAXOSMITHKLINE-B0447348A

PATIENT
  Age: 69 Year
  Sex: Female
  Weight: 73 kg

DRUGS (11)
  1. AVANDAMET [Suspect]
     Dosage: 2UNIT PER DAY
     Route: 048
     Dates: end: 20061014
  2. GLIMEPIRIDE [Suspect]
     Dosage: 1UNIT PER DAY
     Route: 048
     Dates: end: 20061014
  3. ISOPTIN [Concomitant]
     Dosage: 240MG TWICE PER DAY
     Route: 048
     Dates: end: 20061014
  4. COAPROVEL [Concomitant]
     Dosage: 300MG PER DAY
     Route: 048
     Dates: end: 20061014
  5. BURINEX [Concomitant]
     Dosage: 1MG FOUR TIMES PER DAY
     Route: 048
     Dates: end: 20061014
  6. ADANCOR [Concomitant]
     Dosage: 20MG TWICE PER DAY
     Route: 048
     Dates: end: 20061014
  7. DIFFU-K [Concomitant]
     Dosage: 2UNIT PER DAY
     Route: 065
     Dates: end: 20061014
  8. PLAVIX [Concomitant]
     Dosage: 2UNIT PER DAY
     Route: 065
     Dates: end: 20061014
  9. ASPIRIN [Concomitant]
     Dosage: 75MG PER DAY
     Route: 065
     Dates: end: 20061014
  10. TAHOR [Concomitant]
     Dosage: 20MG PER DAY
     Route: 065
     Dates: end: 20061014
  11. VASTAREL [Concomitant]
     Dosage: 35MG TWICE PER DAY
     Route: 065
     Dates: end: 20061014

REACTIONS (16)
  - ABDOMINAL PAIN [None]
  - ANAEMIA [None]
  - ANURIA [None]
  - BRADYCARDIA [None]
  - EXTREMITY NECROSIS [None]
  - HEPATIC FAILURE [None]
  - HYPERKALAEMIA [None]
  - HYPONATRAEMIA [None]
  - HYPOTENSION [None]
  - LACTIC ACIDOSIS [None]
  - LEUKOCYTOSIS [None]
  - OEDEMA PERIPHERAL [None]
  - RENAL FAILURE ACUTE [None]
  - SEPSIS [None]
  - SHOCK [None]
  - VOMITING [None]
